FAERS Safety Report 17392817 (Version 2)
Quarter: 2020Q1

REPORT INFORMATION
  Report Type: Spontaneous
  Country: JP (occurrence: JP)
  Receive Date: 20200207
  Receipt Date: 20200212
  Transmission Date: 20200409
  Serious: Yes (Other)
  Sender: FDA-Public Use
  Company Number: JP-GLAXOSMITHKLINE-JP2020011772

PATIENT

DRUGS (3)
  1. DEPAKENE (VALPROATE SODIUM) [Suspect]
     Active Substance: VALPROATE SODIUM
     Dosage: UNK
     Route: 064
  2. DEPAS (ETIZOLAM) [Suspect]
     Active Substance: ETIZOLAM
     Dosage: UNK
     Route: 064
  3. LAMICTAL [Suspect]
     Active Substance: LAMOTRIGINE
     Indication: EPILEPSY
     Dosage: UNK
     Route: 064

REACTIONS (3)
  - Drug withdrawal syndrome neonatal [Unknown]
  - Foetal exposure during pregnancy [Unknown]
  - Infantile apnoea [Unknown]
